FAERS Safety Report 5821287-4 (Version None)
Quarter: 2008Q3

REPORT INFORMATION
  Report Type: 
  Country: None (occurrence: None)
  Receive Date: 20080722
  Receipt Date: 20080722
  Transmission Date: 20090109
  Serious: Yes (Hospitalization)
  Sender: FDA-Public Use
  Company Number: None

PATIENT
  Sex: Female
  Weight: 36.7414 kg

DRUGS (2)
  1. RISPERDAL [Suspect]
     Dosage: 1 TAB BY MOUTH @  BEDTIME AS NEEDE BUCCAL
     Route: 002
     Dates: start: 20080616, end: 20080625
  2. ZYPREXA ZYDIS [Suspect]
     Indication: PSYCHOTIC DISORDER
     Dosage: 1 TAB BY MOUTH WITH DINNER BUCCAL
     Route: 002
     Dates: start: 20080707, end: 20080720

REACTIONS (12)
  - ABNORMAL BEHAVIOUR [None]
  - AGGRESSION [None]
  - ARTHRALGIA [None]
  - EXCORIATION [None]
  - FEELING ABNORMAL [None]
  - HUMAN BITE [None]
  - HYPOPHAGIA [None]
  - RESTLESSNESS [None]
  - SCRATCH [None]
  - SCREAMING [None]
  - WEIGHT INCREASED [None]
  - WOUND [None]
